FAERS Safety Report 12990633 (Version 1)
Quarter: 2016Q4

REPORT INFORMATION
  Report Type: Spontaneous
  Country: TR (occurrence: TR)
  Receive Date: 20161201
  Receipt Date: 20161201
  Transmission Date: 20170207
  Serious: Yes (Disabling, Other)
  Sender: FDA-Public Use
  Company Number: TR-MYLANLABS-2016M1052098

PATIENT

DRUGS (1)
  1. MELPHALAN [Suspect]
     Active Substance: MELPHALAN
     Indication: RETINOBLASTOMA
     Route: 013

REACTIONS (3)
  - Peripheral embolism [Unknown]
  - Transient ischaemic attack [Unknown]
  - Hemiplegia [Not Recovered/Not Resolved]
